FAERS Safety Report 24251927 (Version 19)
Quarter: 2025Q2

REPORT INFORMATION
  Report Type: Report from Study
  Country: JP (occurrence: JP)
  Receive Date: 20240827
  Receipt Date: 20250603
  Transmission Date: 20250716
  Serious: Yes (Life-Threatening, Hospitalization, Other)
  Sender: ROCHE
  Company Number: JP-CHUGAI-2024028802

PATIENT
  Age: 81 Year
  Sex: Male

DRUGS (8)
  1. PIASKY [Suspect]
     Active Substance: CROVALIMAB-AKKZ
     Indication: Paroxysmal nocturnal haemoglobinuria
     Route: 042
     Dates: start: 20240806, end: 20240806
  2. PIASKY [Suspect]
     Active Substance: CROVALIMAB-AKKZ
     Route: 042
     Dates: start: 20240807, end: 20240827
  3. PIASKY [Suspect]
     Active Substance: CROVALIMAB-AKKZ
     Dosage: UNK
     Route: 058
     Dates: start: 20240903
  4. PIASKY [Suspect]
     Active Substance: CROVALIMAB-AKKZ
     Route: 042
  5. PIASKY [Suspect]
     Active Substance: CROVALIMAB-AKKZ
     Dosage: 680 MILLIGRAM, ONCE/4WEEKS
     Route: 050
  6. PIASKY [Suspect]
     Active Substance: CROVALIMAB-AKKZ
     Dosage: 680 MILLIGRAM, ONCE/4WEEKS
     Route: 058
     Dates: start: 20240806, end: 20240806
  7. PREDNISOLONE [Concomitant]
     Active Substance: PREDNISOLONE
     Route: 065
  8. PREDNISOLONE [Concomitant]
     Active Substance: PREDNISOLONE
     Route: 065

REACTIONS (10)
  - Platelet count decreased [Recovering/Resolving]
  - Type III immune complex mediated reaction [Unknown]
  - C-reactive protein increased [Not Recovered/Not Resolved]
  - Pain [Recovering/Resolving]
  - Infusion related reaction [Unknown]
  - Renal impairment [Recovering/Resolving]
  - Pruritus [Unknown]
  - Breakthrough haemolysis [Recovering/Resolving]
  - Pyrexia [Recovering/Resolving]
  - Off label use [Unknown]

NARRATIVE: CASE EVENT DATE: 20240807
